FAERS Safety Report 9515290 (Version 1)
Quarter: 2013Q3

REPORT INFORMATION
  Report Type: Spontaneous
  Country: JP (occurrence: JP)
  Receive Date: 20130911
  Receipt Date: 20130911
  Transmission Date: 20140515
  Serious: Yes (Other)
  Sender: FDA-Public Use
  Company Number: JP-ALEXION PHARMACEUTICALS INC.-A201302151

PATIENT
  Age: 4 Month
  Sex: Female

DRUGS (4)
  1. SOLIRIS 300MG [Suspect]
     Indication: HAEMOLYTIC URAEMIC SYNDROME
     Dosage: 150 MG, SINGLE
     Route: 042
     Dates: start: 20130830, end: 20130830
  2. AMLODIPINE [Concomitant]
  3. LISINOPRIL [Concomitant]
  4. NACL [Concomitant]

REACTIONS (1)
  - Anaphylactic shock [Recovered/Resolved]
